FAERS Safety Report 20046566 (Version 1)
Quarter: 2021Q4

REPORT INFORMATION
  Report Type: Other
  Country: US (occurrence: US)
  Receive Date: 20211109
  Receipt Date: 20211109
  Transmission Date: 20220303
  Serious: No
  Sender: FDA-Public Use
  Company Number: US-NEUROCRINE BIOSCIENCES INC.-2021NBI06335

PATIENT

DRUGS (21)
  1. INGREZZA [Suspect]
     Active Substance: VALBENAZINE
     Indication: Tardive dyskinesia
     Dosage: 40 MILLIGRAM, QD
     Route: 048
     Dates: start: 20171114, end: 20180125
  2. INGREZZA [Suspect]
     Active Substance: VALBENAZINE
     Dosage: 80 MILLIGRAM, QD
     Route: 048
     Dates: start: 20180126, end: 20180530
  3. INGREZZA [Suspect]
     Active Substance: VALBENAZINE
     Dosage: 40 MILLIGRAM, BID, TWICE A DAY
     Route: 048
  4. REPATHA [Concomitant]
     Active Substance: EVOLOCUMAB
     Indication: Cardiac disorder
     Dosage: UNK, TWICE A MONTH
  5. ZETIA [Concomitant]
     Active Substance: EZETIMIBE
     Dosage: UNK
  6. INFUSION DIGESTION [Concomitant]
     Indication: Arthritis
     Dosage: EVERY 4 WEEKS
  7. LANTUS [Concomitant]
     Active Substance: INSULIN GLARGINE
     Dosage: 16 UNK, QD,16 UNITS DAILY (UNIT NOT REPORTED)
  8. HUMALOG [Concomitant]
     Active Substance: INSULIN LISPRO
     Indication: Diabetes mellitus
     Dosage: 250 UNK (UNIT NOT REPORTED)
  9. JARDIANCE [Concomitant]
     Active Substance: EMPAGLIFLOZIN
     Dosage: UNK, QD, ONCE A DAY
  10. JANUVIA [Concomitant]
     Active Substance: SITAGLIPTIN PHOSPHATE
     Dosage: UNK, ONCE A DAY
  11. CARBIDOPA [Concomitant]
     Active Substance: CARBIDOPA
     Indication: Tremor
     Dosage: UNK
  12. LOSARTAN POTASSIUM [Concomitant]
     Active Substance: LOSARTAN POTASSIUM
     Indication: Blood pressure measurement
     Dosage: UNK
  13. LEXAPRO [Concomitant]
     Active Substance: ESCITALOPRAM OXALATE
     Indication: Anxiety
     Dosage: UNK
  14. LEUCOVORIN CALCIUM [Concomitant]
     Active Substance: LEUCOVORIN CALCIUM
     Indication: Anaemia
     Dosage: 5 MILLIGRAM, 3 DAYS A WEEK 1 PILL
  15. METHOTREXATE [Concomitant]
     Active Substance: METHOTREXATE
     Indication: Rheumatoid arthritis
     Dosage: UNK
  16. TYLENOL [Concomitant]
     Active Substance: ACETAMINOPHEN
     Indication: Pain
     Dosage: UNK
  17. VITAMINS NOS [Concomitant]
     Active Substance: VITAMINS
     Dosage: UNK
  18. CALCIUM\CHOLECALCIFEROL [Concomitant]
     Active Substance: CALCIUM\CHOLECALCIFEROL
     Indication: Eye disorder
     Dosage: UNK
  19. LUTIN [Concomitant]
     Indication: Eye disorder
     Dosage: UNK
  20. ASPIRIN [Concomitant]
     Active Substance: ASPIRIN
     Dosage: 81 MILLIGRAM
  21. ONDANSETRON [Concomitant]
     Active Substance: ONDANSETRON
     Indication: Impaired gastric emptying
     Dosage: UNK

REACTIONS (3)
  - Somnolence [Unknown]
  - Therapeutic product effect incomplete [Unknown]
  - Off label use [Unknown]
